FAERS Safety Report 6373761-2 (Version None)
Quarter: 2009Q3

REPORT INFORMATION
  Report Type: 
  Country: None (occurrence: None)
  Receive Date: 20090924
  Receipt Date: 20090506
  Transmission Date: 20100115
  Serious: Yes (Life-Threatening)
  Sender: FDA-Public Use
  Company Number: US-ASTRAZENECA-2009UW11451

PATIENT
  Age: 40 Year
  Sex: Female

DRUGS (1)
  1. SEROQUEL XR [Suspect]
     Dosage: 150MG
     Route: 048

REACTIONS (2)
  - SLUGGISHNESS [None]
  - SUICIDE ATTEMPT [None]
